FAERS Safety Report 6842755-2 (Version None)
Quarter: 2010Q3

REPORT INFORMATION
  Report Type: 
  Country: None (occurrence: None)
  Receive Date: 20100714
  Receipt Date: 20070803
  Transmission Date: 20110219
  Serious: No
  Sender: FDA-Public Use
  Company Number: US-PFIZER INC-2007066100

PATIENT
  Sex: Female
  Weight: 63.636 kg

DRUGS (4)
  1. CHANTIX [Suspect]
     Indication: SMOKING CESSATION THERAPY
     Dates: start: 20070717
  2. NORVASC [Suspect]
  3. LIPITOR [Suspect]
  4. ATENOLOL [Suspect]

REACTIONS (4)
  - DIARRHOEA [None]
  - NAUSEA [None]
  - VOMITING [None]
  - WEIGHT INCREASED [None]
